FAERS Safety Report 24585967 (Version 3)
Quarter: 2025Q3

REPORT INFORMATION
  Report Type: Spontaneous
  Country: US (occurrence: US)
  Receive Date: 20241106
  Receipt Date: 20250807
  Transmission Date: 20251021
  Serious: No
  Sender: PFIZER
  Company Number: US-PFIZER INC-PV202400143102

PATIENT
  Age: 79 Year
  Sex: Female
  Weight: 78.834 kg

DRUGS (5)
  1. IBRANCE [Suspect]
     Active Substance: PALBOCICLIB
     Indication: Breast cancer female
     Route: 048
     Dates: start: 201801
  2. IBRANCE [Suspect]
     Active Substance: PALBOCICLIB
     Indication: Metastases to lung
  3. XELODA [Concomitant]
     Active Substance: CAPECITABINE
     Dosage: 1000 MG, 2X/DAY (7 DAYS ON 7 DAYS OFF)
     Route: 048
  4. FASLODEX [Concomitant]
     Active Substance: FULVESTRANT
     Dates: start: 201801
  5. ADVIL [Concomitant]
     Active Substance: IBUPROFEN
     Dosage: 400 MG, DAILY (200 MG, 2 TABLET DAILY)
     Route: 048

REACTIONS (8)
  - Neutrophil count decreased [Unknown]
  - White blood cell count decreased [Unknown]
  - Haemoglobin decreased [Unknown]
  - Haematocrit decreased [Unknown]
  - Red blood cell count decreased [Unknown]
  - Lymphocyte count decreased [Unknown]
  - Mean cell volume increased [Unknown]
  - Mean cell haemoglobin increased [Unknown]
